FAERS Safety Report 24811145 (Version 1)
Quarter: 2025Q1

REPORT INFORMATION
  Report Type: Spontaneous
  Country: US (occurrence: None)
  Receive Date: 20250106
  Receipt Date: 20250106
  Transmission Date: 20250409
  Serious: No
  Sender: FDA-CTU
  Company Number: None

PATIENT

DRUGS (2)
  1. ZETIA [Suspect]
     Active Substance: EZETIMIBE
  2. EZETIMIBE [Suspect]
     Active Substance: EZETIMIBE

REACTIONS (4)
  - Treatment failure [None]
  - Drug intolerance [None]
  - Dizziness [None]
  - Headache [None]
